FAERS Safety Report 4313227-4 (Version None)
Quarter: 2004Q1

REPORT INFORMATION
  Report Type: 
  Country: None (occurrence: None)
  Receive Date: 20040305
  Receipt Date: 20040211
  Transmission Date: 20041129
  Serious: Yes (Death, Hospitalization)
  Sender: FDA-Public Use
  Company Number: A-US2004-05030

PATIENT
  Age: 44 Year
  Sex: Female
  Weight: 60 kg

DRUGS (5)
  1. TRACLEER [Suspect]
     Indication: PULMONARY HYPERTENSION
     Dosage: 62.5 MG, BID, ORAL
     Route: 048
     Dates: start: 20040101, end: 20040112
  2. STEROIDS [Concomitant]
  3. OXACILLIN [Concomitant]
  4. EXACIN (ISEPAMICIN SULFATE) [Concomitant]
  5. STEROIDS [Concomitant]

REACTIONS (34)
  - ACINETOBACTER INFECTION [None]
  - ALANINE AMINOTRANSFERASE INCREASED [None]
  - ARTHRITIS BACTERIAL [None]
  - ASPARTATE AMINOTRANSFERASE INCREASED [None]
  - BACTERAEMIA [None]
  - BLOOD ALKALINE PHOSPHATASE INCREASED [None]
  - BLOOD BILIRUBIN INCREASED [None]
  - BLOOD PRESSURE INADEQUATELY CONTROLLED [None]
  - BRADYCARDIA [None]
  - DILATATION ATRIAL [None]
  - DILATATION VENTRICULAR [None]
  - ENTEROBACTER INFECTION [None]
  - ESCHERICHIA URINARY TRACT INFECTION [None]
  - HAEMATOCRIT DECREASED [None]
  - HAEMODIALYSIS [None]
  - HAEMOGLOBIN DECREASED [None]
  - LOSS OF CONSCIOUSNESS [None]
  - LUNG CONSOLIDATION [None]
  - MOUTH ULCERATION [None]
  - MULTI-ORGAN FAILURE [None]
  - PULMONARY OEDEMA [None]
  - RENAL CYST [None]
  - RENAL FAILURE ACUTE [None]
  - RESPIRATORY FAILURE [None]
  - RESTRICTIVE PULMONARY DISEASE [None]
  - SEPTIC SHOCK [None]
  - SPINAL COMPRESSION FRACTURE [None]
  - SPONDYLITIS [None]
  - STAPHYLOCOCCAL BACTERAEMIA [None]
  - STAPHYLOCOCCAL INFECTION [None]
  - STRESS ULCER [None]
  - TRICUSPID VALVE INCOMPETENCE [None]
  - UPPER GASTROINTESTINAL HAEMORRHAGE [None]
  - WOUND INFECTION STAPHYLOCOCCAL [None]
